FAERS Safety Report 23751670 (Version 5)
Quarter: 2024Q2

REPORT INFORMATION
  Report Type: Report from Study
  Country: US (occurrence: US)
  Receive Date: 20240417
  Receipt Date: 20240516
  Transmission Date: 20240716
  Serious: Yes (Hospitalization, Other)
  Sender: FDA-Public Use
  Company Number: US-GILEAD-2024-0668617

PATIENT
  Sex: Female

DRUGS (4)
  1. AMBRISENTAN [Suspect]
     Active Substance: AMBRISENTAN
     Indication: Pulmonary arterial hypertension
     Dosage: 10 MG, QD
     Route: 065
     Dates: start: 20200922
  2. AMBRISENTAN [Suspect]
     Active Substance: AMBRISENTAN
     Dosage: 5 MG, QD
     Route: 065
     Dates: start: 20200922
  3. TYVASO [Suspect]
     Active Substance: TREPROSTINIL
     Indication: Product used for unknown indication
     Dosage: UNK
     Route: 065
  4. TADALAFIL [Concomitant]
     Active Substance: TADALAFIL

REACTIONS (11)
  - Syncope [Not Recovered/Not Resolved]
  - Appendicectomy [Recovered/Resolved]
  - Loss of consciousness [Unknown]
  - Infection [Unknown]
  - Catheterisation cardiac [Unknown]
  - Restrictive pulmonary disease [Unknown]
  - Nausea [Unknown]
  - Blood pressure decreased [Unknown]
  - Headache [Unknown]
  - Throat irritation [Unknown]
  - Off label use [Recovered/Resolved]
